FAERS Safety Report 13570431 (Version 7)
Quarter: 2023Q4

REPORT INFORMATION
  Report Type: Spontaneous
  Country: GB (occurrence: GB)
  Receive Date: 20170522
  Receipt Date: 20231015
  Transmission Date: 20240109
  Serious: Yes (Other)
  Sender: FDA-Public Use
  Company Number: PHFR2017GB003798

PATIENT
  Age: 75 Year
  Sex: Male
  Weight: 90 kg

DRUGS (19)
  1. VOLTAROL [Suspect]
     Active Substance: DICLOFENAC SODIUM
     Indication: Arthritis
     Dosage: 2 DOSAGE FORM
     Route: 065
  2. VOLTAROL [Suspect]
     Active Substance: DICLOFENAC SODIUM
     Indication: Musculoskeletal stiffness
     Dosage: 150 MG, QD
     Route: 065
  3. VOLTAROL [Suspect]
     Active Substance: DICLOFENAC SODIUM
     Indication: Gastrointestinal disorder
     Dosage: 1 DOSAGE FORM, TID
     Route: 065
  4. DICLOFENAC [Suspect]
     Active Substance: DICLOFENAC
     Indication: Arthritis
     Dosage: UNK
     Route: 016
     Dates: start: 201801
  5. VOLTAROL [Suspect]
     Active Substance: DICLOFENAC SODIUM
     Indication: Arthritis
     Dosage: 1 DOSAGE FORM, TID
     Route: 065
  6. VOLTAROL [Suspect]
     Active Substance: DICLOFENAC SODIUM
     Indication: Musculoskeletal stiffness
     Dosage: 100 MG, QD
     Route: 065
  7. VOLTAROL [Suspect]
     Active Substance: DICLOFENAC SODIUM
     Indication: Gastrointestinal disorder
     Dosage: 2 DF (2 DOSAGE FORM)
     Route: 065
  8. VOLTAROL [Suspect]
     Active Substance: DICLOFENAC SODIUM
     Dosage: 150 MG, QD (150 MILLIGRAM, ONCE A DAY)
     Route: 065
  9. VOLTAROL [Suspect]
     Active Substance: DICLOFENAC SODIUM
     Dosage: 1 DF, TID (1 DOSAGE FORM, 3 TIMES A DAY)
     Route: 065
  10. VOLTAROL [Suspect]
     Active Substance: DICLOFENAC SODIUM
     Dosage: 1 DF, TID (1 DOSAGE FORM, 3 TIMES A DAY)
     Route: 065
  11. VOLTAROL [Suspect]
     Active Substance: DICLOFENAC SODIUM
     Dosage: 100 DF, QD (100 DOSAGE FORM, ONCE A DAY)
     Route: 065
  12. VOLTAROL [Suspect]
     Active Substance: DICLOFENAC SODIUM
     Indication: Product used for unknown indication
     Dosage: 150 MG, QD
     Route: 065
  13. METFORMIN [Suspect]
     Active Substance: METFORMIN HYDROCHLORIDE
     Indication: Diabetes mellitus
     Dosage: UNK
     Route: 065
  14. APIDRA [Concomitant]
     Active Substance: INSULIN GLULISINE
     Indication: Product used for unknown indication
     Dosage: UNK
     Route: 065
  15. COCODAMOL [Concomitant]
     Active Substance: ACETAMINOPHEN\CODEINE PHOSPHATE
     Indication: Product used for unknown indication
     Dosage: UNK
     Route: 065
  16. EZETIMIBE [Concomitant]
     Active Substance: EZETIMIBE
     Indication: Product used for unknown indication
     Dosage: UNK
     Route: 065
  17. RANITIDINE [Concomitant]
     Active Substance: RANITIDINE
     Indication: Product used for unknown indication
     Dosage: UNK
     Route: 065
  18. ZOPICLONE [Concomitant]
     Active Substance: ZOPICLONE
     Indication: Product used for unknown indication
     Dosage: UNK
     Route: 065
  19. INSULIN NOS [Concomitant]
     Active Substance: INSULIN NOS
     Indication: Diabetes mellitus
     Dosage: UNK
     Route: 065

REACTIONS (6)
  - Drug dependence [Unknown]
  - Gait disturbance [Unknown]
  - Musculoskeletal stiffness [Unknown]
  - Pain [Unknown]
  - Therapeutic response unexpected [Unknown]
  - Drug ineffective [Unknown]

NARRATIVE: CASE EVENT DATE: 20180201
